FAERS Safety Report 7917173-6 (Version None)
Quarter: 2011Q4

REPORT INFORMATION
  Report Type: 
  Country: None (occurrence: None)
  Receive Date: 20111104
  Receipt Date: 20111024
  Transmission Date: 20120403
  Serious: Yes (Other)
  Sender: FDA-Public Use
  Company Number: 2011030173

PATIENT
  Age: 59 Year
  Sex: Male

DRUGS (1)
  1. PRIVIGEN [Suspect]
     Indication: MULTIFOCAL MOTOR NEUROPATHY
     Dosage: 400 MG/KG QD INTRAVENOUS (NOT OTHERWISE SPECIFIED)
     Route: 042
     Dates: start: 20110808

REACTIONS (2)
  - NEURALGIA [None]
  - MENINGITIS ASEPTIC [None]
